FAERS Safety Report 20088113 (Version 3)
Quarter: 2021Q4

REPORT INFORMATION
  Report Type: Spontaneous
  Country: US (occurrence: US)
  Receive Date: 20211118
  Receipt Date: 20211125
  Transmission Date: 20220304
  Serious: No
  Sender: FDA-Public Use
  Company Number: US-BIOGEN-2021BI01069075

PATIENT
  Age: 24 Year
  Sex: Male

DRUGS (1)
  1. SPINRAZA [Suspect]
     Active Substance: NUSINERSEN
     Indication: Product used for unknown indication
     Route: 065

REACTIONS (2)
  - Post lumbar puncture syndrome [Recovered/Resolved]
  - Back pain [Unknown]

NARRATIVE: CASE EVENT DATE: 20211118
